FAERS Safety Report 4496446-6 (Version None)
Quarter: 2004Q4

REPORT INFORMATION
  Report Type: 
  Country: None (occurrence: None)
  Receive Date: 20041105
  Receipt Date: 20041021
  Transmission Date: 20050328
  Serious: Yes (Death)
  Sender: FDA-Public Use
  Company Number: 2004S1003155

PATIENT
  Age: 83 Year
  Sex: Female

DRUGS (5)
  1. CLOZAPINE [Suspect]
     Dosage: 25 MG QD, ORAL
     Route: 048
     Dates: start: 20040801
  2. MORPHINE [Concomitant]
  3. FENTANYL [Concomitant]
  4. IV HYDRATION [Concomitant]
  5. HALOPERIDOL [Concomitant]

REACTIONS (1)
  - DEATH [None]
